FAERS Safety Report 24562663 (Version 2)
Quarter: 2024Q4

REPORT INFORMATION
  Report Type: Report from Study
  Country: US (occurrence: US)
  Receive Date: 20241029
  Receipt Date: 20241216
  Transmission Date: 20250115
  Serious: No
  Sender: MERCK
  Company Number: US-009507513-2409USA010400

PATIENT
  Sex: Female
  Weight: 49.9 kg

DRUGS (26)
  1. SOTATERCEPT [Suspect]
     Active Substance: SOTATERCEPT
     Indication: Pulmonary arterial hypertension
     Dosage: HALF DOSE
     Dates: start: 2024
  2. SOTATERCEPT [Suspect]
     Active Substance: SOTATERCEPT
     Dosage: 0.7 MILLILITER, Q3W, STRENGTH: 45 MG
     Route: 058
     Dates: start: 2024
  3. TYVASO DPI [Suspect]
     Active Substance: TREPROSTINIL
     Indication: Pulmonary arterial hypertension
     Dosage: UNK
     Dates: start: 20231006
  4. TYVASO DPI [Suspect]
     Active Substance: TREPROSTINIL
     Dosage: 64 MICROGRAM, QID, STRENGTH 64 MICROGRAM
  5. ADEMPAS [Suspect]
     Active Substance: RIOCIGUAT
     Indication: Product used for unknown indication
     Dosage: UNK
  6. VITAMIN B6 [Concomitant]
     Active Substance: PYRIDOXINE HYDROCHLORIDE
  7. VITAMIN C [Concomitant]
     Active Substance: ASCORBIC ACID
  8. LIOTHYRONINE SODIUM [Concomitant]
     Active Substance: LIOTHYRONINE SODIUM
  9. FOLIC ACID [Concomitant]
     Active Substance: FOLIC ACID
  10. PROLIA [Concomitant]
     Active Substance: DENOSUMAB
  11. AZATHIOPRINE [Concomitant]
     Active Substance: AZATHIOPRINE
  12. ALBUTEROL SULFATE [Concomitant]
     Active Substance: ALBUTEROL SULFATE
  13. QUERCETIN [Concomitant]
     Active Substance: QUERCETIN
  14. METOPROLOL SUCCINATE [Concomitant]
     Active Substance: METOPROLOL SUCCINATE
  15. URSODIOL [Concomitant]
     Active Substance: URSODIOL
  16. IRON [Concomitant]
     Active Substance: IRON
  17. CALCIUM [Concomitant]
     Active Substance: CALCIUM
  18. VITAMIN B12 [Concomitant]
     Active Substance: CYANOCOBALAMIN
  19. LEVOTHYROXINE SODIUM [Concomitant]
     Active Substance: LEVOTHYROXINE SODIUM
  20. OXYGEN [Concomitant]
     Active Substance: OXYGEN
  21. ZINC [Concomitant]
     Active Substance: ZINC
  22. VALSARTAN [Concomitant]
     Active Substance: VALSARTAN
  23. MAGNESIUM [Concomitant]
     Active Substance: MAGNESIUM
  24. KRILL OIL [Concomitant]
     Active Substance: DIETARY SUPPLEMENT\KRILL OIL
  25. VITAMIN D3 [Concomitant]
     Active Substance: CHOLECALCIFEROL
  26. PRASTERONE [Concomitant]
     Active Substance: PRASTERONE

REACTIONS (18)
  - Abdominal pain upper [Unknown]
  - Nausea [Unknown]
  - Vomiting [Unknown]
  - Blood alkaline phosphatase increased [Unknown]
  - Heart rate increased [Recovering/Resolving]
  - Throat irritation [Unknown]
  - Productive cough [Unknown]
  - Hepatic enzyme increased [Unknown]
  - Therapy partial responder [Unknown]
  - Wheezing [Unknown]
  - Dizziness [Unknown]
  - Abdominal distension [Unknown]
  - Back pain [Unknown]
  - Incorrect dose administered [Unknown]
  - Product dose omission issue [Unknown]
  - Device issue [Unknown]
  - Syringe issue [Unknown]
  - Wrong technique in device usage process [Unknown]

NARRATIVE: CASE EVENT DATE: 20240101
